FAERS Safety Report 8477155-5 (Version None)
Quarter: 2012Q2

REPORT INFORMATION
  Report Type: 
  Country: None (occurrence: None)
  Receive Date: 20120625
  Receipt Date: 20120625
  Transmission Date: 20120825
  Serious: Yes (Hospitalization)
  Sender: FDA-Public Use
  Company Number: None

PATIENT
  Age: 73 Year
  Sex: Male
  Weight: 112.7 kg

DRUGS (1)
  1. AMITRIPTYLINE HCL [Suspect]
     Indication: NEUROPATHY PERIPHERAL
     Dosage: 25 MG AT BEDTIME PO
     Route: 048
     Dates: start: 20120425, end: 20120429

REACTIONS (4)
  - HYPOTENSION [None]
  - DIZZINESS [None]
  - PRESYNCOPE [None]
  - TACHYCARDIA [None]
